FAERS Safety Report 9791555 (Version 1)
Quarter: 2014Q1

REPORT INFORMATION
  Report Type: Spontaneous
  Country: JP (occurrence: JP)
  Receive Date: 20140101
  Receipt Date: 20140101
  Transmission Date: 20141002
  Serious: Yes (Hospitalization, Other)
  Sender: FDA-Public Use
  Company Number: PHHY2013JP151799

PATIENT
  Age: 53 Year
  Sex: Male

DRUGS (1)
  1. HEPARIN [Suspect]
     Dosage: 625 IU, PER HPUR

REACTIONS (4)
  - Hypotension [Recovering/Resolving]
  - Haemoglobin decreased [Recovering/Resolving]
  - Hepatic haemorrhage [Recovering/Resolving]
  - Hepatic haematoma [Recovering/Resolving]
